FAERS Safety Report 7744404 (Version 3)
Quarter: 2018Q2

REPORT INFORMATION
  Report Type: Report from Study
  Country: US (occurrence: US)
  Receive Date: 20101230
  Receipt Date: 20180516
  Transmission Date: 20180711
  Serious: Yes (Death, Other)
  Sender: FDA-Public Use
  Company Number: US-ROCHE-750440

PATIENT

DRUGS (2)
  1. CEFTRIAXONE. [Suspect]
     Active Substance: CEFTRIAXONE
     Indication: PNEUMONIA
     Dosage: FOR 5-7 DAYS
     Route: 042
  2. CLARITHROMYCIN. [Concomitant]
     Active Substance: CLARITHROMYCIN
     Dosage: ADJUNCTIVE THERAPY, ON DAY 1
     Route: 048

REACTIONS (16)
  - Hepatic failure [Unknown]
  - Pneumonia [Unknown]
  - Lung abscess [Unknown]
  - Respiratory failure [Unknown]
  - Hypersensitivity [Unknown]
  - Diarrhoea [Unknown]
  - Cardio-respiratory arrest [Unknown]
  - Pleural effusion [Unknown]
  - Chronic obstructive pulmonary disease [Unknown]
  - Multiple organ dysfunction syndrome [Fatal]
  - Hypertension [Unknown]
  - Hypokalaemia [Unknown]
  - Pulmonary embolism [Unknown]
  - Blood creatinine increased [Unknown]
  - Creatinine renal clearance decreased [Unknown]
  - Hepatocellular injury [Unknown]
